FAERS Safety Report 16310014 (Version 2)
Quarter: 2019Q2

REPORT INFORMATION
  Report Type: Spontaneous
  Country: JP (occurrence: JP)
  Receive Date: 20190514
  Receipt Date: 20190612
  Transmission Date: 20190711
  Serious: Yes (Hospitalization, Other)
  Sender: FDA-Public Use
  Company Number: JP-PFIZER INC-2019014233

PATIENT
  Age: 66 Year
  Sex: Female
  Weight: 44 kg

DRUGS (11)
  1. ZACRAS COMBINATION [Concomitant]
     Active Substance: AMLODIPINE BESYLATE\AZILSARTAN
     Indication: HYPERTENSION
     Dosage: 1 DF, 1X/DAY
     Route: 048
  2. BELSOMRA [Suspect]
     Active Substance: SUVOREXANT
     Indication: INSOMNIA
     Dosage: 10 MG, 1X/DAY
     Route: 048
  3. BELSOMRA [Suspect]
     Active Substance: SUVOREXANT
     Dosage: 20 MG, 1X/DAY
     Route: 048
     Dates: start: 20190108, end: 20190108
  4. MOHRUS [Concomitant]
     Active Substance: KETOPROFEN
     Dosage: UNK
     Route: 061
  5. LOXOPROFEN [Concomitant]
     Active Substance: LOXOPROFEN
     Indication: PROCEDURAL PAIN
     Dosage: 180 MG, 3X/DAY
     Route: 048
  6. LYRICA [Suspect]
     Active Substance: PREGABALIN
     Indication: PROCEDURAL PAIN
     Dosage: 150 MG, 2X/DAY
     Route: 048
  7. BELSOMRA [Suspect]
     Active Substance: SUVOREXANT
     Dosage: 30 MG, 1X/DAY
     Route: 048
     Dates: start: 20190108, end: 20190108
  8. LYRICA [Suspect]
     Active Substance: PREGABALIN
     Dosage: 26 DF, 1X/DAY
     Route: 048
     Dates: start: 20190108, end: 20190108
  9. MYSLEE [Suspect]
     Active Substance: ZOLPIDEM TARTRATE
     Indication: INSOMNIA
     Dosage: 1 DF, 1X/DAY
     Route: 048
     Dates: start: 20190108, end: 20190108
  10. LOXOPROFEN [Concomitant]
     Active Substance: LOXOPROFEN
     Dosage: 120 MG, 1X/DAY
     Route: 048
     Dates: start: 20190108, end: 20190108
  11. NEXIUM MUPS [ESOMEPRAZOLE MAGNESIUM] [Concomitant]
     Active Substance: ESOMEPRAZOLE MAGNESIUM
     Dosage: 20 MG, 1X/DAY
     Route: 048

REACTIONS (13)
  - Blood pressure fluctuation [Recovered/Resolved]
  - Blood albumin decreased [Not Recovered/Not Resolved]
  - Aspartate aminotransferase increased [Not Recovered/Not Resolved]
  - Altered state of consciousness [Recovered/Resolved]
  - Myoclonus [Recovered/Resolved]
  - C-reactive protein increased [Not Recovered/Not Resolved]
  - Overdose [Unknown]
  - Blood creatine phosphokinase increased [Recovered/Resolved]
  - Blood cholesterol increased [Not Recovered/Not Resolved]
  - Suicide attempt [Unknown]
  - Protein total decreased [Not Recovered/Not Resolved]
  - Somnolence [Recovered/Resolved]
  - Blood triglycerides increased [Not Recovered/Not Resolved]

NARRATIVE: CASE EVENT DATE: 20190108
